FAERS Safety Report 9569113 (Version 1)
Quarter: 2013Q3

REPORT INFORMATION
  Report Type: Spontaneous
  Country: US (occurrence: US)
  Receive Date: 20130930
  Receipt Date: 20130930
  Transmission Date: 20140515
  Serious: No
  Sender: FDA-Public Use
  Company Number: US-AMGEN-USASP2013059725

PATIENT
  Age: 60 Year
  Sex: Female

DRUGS (1)
  1. ENBREL [Suspect]
     Indication: RHEUMATOID ARTHRITIS
     Dosage: 50 MG, QWK
     Route: 058
     Dates: start: 200503, end: 201308

REACTIONS (7)
  - Burning sensation [Unknown]
  - Condition aggravated [Unknown]
  - Joint stiffness [Unknown]
  - Pain in extremity [Unknown]
  - Local swelling [Unknown]
  - Inflammation [Unknown]
  - Injection site reaction [Unknown]
